FAERS Safety Report 9558991 (Version 1)
Quarter: 2013Q3

REPORT INFORMATION
  Report Type: Spontaneous
  Country: US (occurrence: US)
  Receive Date: 20130927
  Receipt Date: 20130927
  Transmission Date: 20140515
  Serious: No
  Sender: FDA-Public Use
  Company Number: US-BIOGENIDEC-2013BI092158

PATIENT
  Age: 51 Year
  Sex: Female

DRUGS (6)
  1. AVONEX [Suspect]
     Indication: MULTIPLE SCLEROSIS
     Route: 030
     Dates: start: 2010, end: 201205
  2. AVONEX [Suspect]
     Indication: MULTIPLE SCLEROSIS
     Route: 030
     Dates: start: 201205
  3. LOW DOSE OF BIRTH CONTROL PILLS [Concomitant]
     Indication: UTERINE LEIOMYOMA
  4. GABAPENTIN [Concomitant]
     Indication: NEURALGIA
  5. GABAPENTIN [Concomitant]
     Indication: TRISMUS
  6. LEVOTHYROXINE [Concomitant]
     Indication: THYROIDECTOMY

REACTIONS (4)
  - Vaginal haemorrhage [Recovered/Resolved]
  - Uterine spasm [Recovered/Resolved]
  - Neuralgia [Recovered/Resolved]
  - Trismus [Recovered/Resolved]
